FAERS Safety Report 5060511-5 (Version None)
Quarter: 2006Q3

REPORT INFORMATION
  Report Type: 
  Country: None (occurrence: None)
  Receive Date: 20060721
  Receipt Date: 20060721
  Transmission Date: 20061208
  Serious: Yes (Life-Threatening)
  Sender: FDA-Public Use
  Company Number: None

PATIENT
  Age: 56 Year
  Sex: Female
  Weight: 108.8633 kg

DRUGS (2)
  1. ENOXAPARIN SODIUM [Suspect]
     Indication: DEEP VEIN THROMBOSIS
     Dosage: 100 MG  Q 12 H SQ
     Route: 058
     Dates: start: 20060320, end: 20060321
  2. ENOXAPARIN SODIUM [Suspect]
     Dosage: 120 MG Q 12 H SQ
     Route: 058
     Dates: start: 20060321, end: 20060322

REACTIONS (2)
  - HAEMATOMA [None]
  - HAEMORRHAGE [None]
